FAERS Safety Report 4668944-3 (Version None)
Quarter: 2005Q2

REPORT INFORMATION
  Report Type: 
  Country: None (occurrence: None)
  Receive Date: 20050523
  Receipt Date: 20050513
  Transmission Date: 20051028
  Serious: Yes (Other)
  Sender: FDA-Public Use
  Company Number: GB-GLAXOSMITHKLINE-B0381209A

PATIENT
  Sex: Male

DRUGS (1)
  1. AQUAFRESH EXTREME CLEAN TOOTHPASTE TUBE [Suspect]
     Indication: DENTAL CLEANING

REACTIONS (1)
  - ASTHMA [None]
